FAERS Safety Report 5421626-2 (Version None)
Quarter: 2007Q3

REPORT INFORMATION
  Report Type: 
  Country: None (occurrence: None)
  Receive Date: 20070821
  Receipt Date: 20070809
  Transmission Date: 20080115
  Serious: Yes (Other)
  Sender: FDA-Public Use
  Company Number: US-PFIZER INC-2007055183

PATIENT
  Sex: Female
  Weight: 60.3 kg

DRUGS (19)
  1. CHANTIX [Suspect]
     Indication: SMOKING CESSATION THERAPY
  2. ALBUTEROL [Concomitant]
  3. ADVAIR DISKUS 100/50 [Concomitant]
  4. CENTRUM SILVER [Concomitant]
  5. NORVASC [Concomitant]
  6. ALLEGRA [Concomitant]
  7. LASIX [Concomitant]
  8. SYNTHROID [Concomitant]
  9. ZOLOFT [Concomitant]
  10. PRILOSEC [Concomitant]
  11. OCUVITE [Concomitant]
  12. CLORAZEPATE [Concomitant]
  13. VOLTAREN [Concomitant]
  14. LYRICA [Concomitant]
  15. POTASSIUM CHLORIDE [Concomitant]
  16. ALL OTHER THERAPEUTIC PRODUCTS [Concomitant]
  17. TYLENOL [Concomitant]
  18. FEOSOL [Concomitant]
  19. CELEBREX [Concomitant]

REACTIONS (11)
  - ABNORMAL DREAMS [None]
  - ASTHMA [None]
  - CHEST DISCOMFORT [None]
  - CHRONIC OBSTRUCTIVE PULMONARY DISEASE [None]
  - COUGH [None]
  - DIZZINESS [None]
  - DYSPNOEA [None]
  - FEELING ABNORMAL [None]
  - HUNGER [None]
  - NAUSEA [None]
  - SMOKER [None]
